FAERS Safety Report 19303575 (Version 2)
Quarter: 2021Q2

REPORT INFORMATION
  Report Type: Spontaneous
  Country: BG (occurrence: BG)
  Receive Date: 20210525
  Receipt Date: 20210529
  Transmission Date: 20210717
  Serious: Yes (Hospitalization)
  Sender: FDA-Public Use
  Company Number: BG-ROCHE-2835105

PATIENT
  Age: 60 Year
  Sex: Female

DRUGS (10)
  1. TRITACE [Concomitant]
     Active Substance: RAMIPRIL
     Route: 065
  2. REMDESIVIR. [Concomitant]
     Active Substance: REMDESIVIR
     Indication: COVID-19 PNEUMONIA
     Dosage: ONGOING
     Route: 065
     Dates: start: 20210511
  3. BLOOD PLASMA [Concomitant]
     Active Substance: HUMAN PLASMA
     Indication: COVID-19 PNEUMONIA
     Route: 065
     Dates: start: 20210511
  4. RIXATHON [Concomitant]
     Active Substance: RITUXIMAB
     Indication: B-CELL LYMPHOMA
     Dosage: 500MG/50 ML?ONE?OFF
     Route: 042
     Dates: start: 20210115, end: 20210115
  5. PARACETAMOL [Concomitant]
     Active Substance: ACETAMINOPHEN
     Indication: B-CELL LYMPHOMA
     Route: 048
     Dates: start: 20210115, end: 20210205
  6. FAMOTIDINE. [Concomitant]
     Active Substance: FAMOTIDINE
     Indication: B-CELL LYMPHOMA
     Route: 048
     Dates: start: 20210115, end: 20210205
  7. MABTHERA [Suspect]
     Active Substance: RITUXIMAB
     Indication: B-CELL LYMPHOMA
     Dosage: 375 MG/ML
     Route: 042
     Dates: start: 20210115, end: 20210205
  8. CLARITHROMYCIN. [Concomitant]
     Active Substance: CLARITHROMYCIN
     Dosage: 2018/ 14?DAY?TREATMENT
     Route: 065
     Dates: start: 2018
  9. AMOXICILLIN. [Concomitant]
     Active Substance: AMOXICILLIN
     Dosage: 2018/ 14?DAY TREATMENT
     Route: 065
     Dates: start: 2018
  10. LANSOPRAZOLE. [Concomitant]
     Active Substance: LANSOPRAZOLE
     Dosage: 2018/ 14?DAY TREATMENT
     Route: 065
     Dates: start: 2018

REACTIONS (3)
  - Pneumonia [Recovered/Resolved]
  - COVID-19 [Recovered/Resolved]
  - Immunosuppression [Recovering/Resolving]

NARRATIVE: CASE EVENT DATE: 202103
